FAERS Safety Report 10553964 (Version 2)
Quarter: 2014Q4

REPORT INFORMATION
  Report Type: Spontaneous
  Country: US (occurrence: None)
  Receive Date: 20141028
  Receipt Date: 20141216
  Transmission Date: 20150529
  Serious: Yes (Hospitalization)
  Sender: FDA-Public Use
  Company Number: 2014-US-013674

PATIENT
  Age: 41 Year
  Sex: Female
  Weight: 86.6 kg

DRUGS (3)
  1. ADDERALL [Concomitant]
     Active Substance: AMPHETAMINE ASPARTATE\AMPHETAMINE SULFATE\DEXTROAMPHETAMINE SACCHARATE\DEXTROAMPHETAMINE SULFATE
  2. PRILOSEC (OMEPRAZOLE) [Concomitant]
     Active Substance: OMEPRAZOLE MAGNESIUM
  3. XYREM [Suspect]
     Active Substance: SODIUM OXYBATE
     Indication: NARCOLEPSY
     Route: 048
     Dates: start: 201006, end: 2010

REACTIONS (9)
  - Aphasia [None]
  - Back pain [None]
  - Loss of consciousness [None]
  - Orthopnoea [None]
  - Allergic sinusitis [None]
  - Migraine [None]
  - Rotator cuff syndrome [None]
  - Bronchitis [None]
  - Tremor [None]

NARRATIVE: CASE EVENT DATE: 201405
